FAERS Safety Report 7086170-8 (Version None)
Quarter: 2010Q4

REPORT INFORMATION
  Report Type: 
  Country: None (occurrence: None)
  Receive Date: 20101028
  Receipt Date: 20101013
  Transmission Date: 20110411
  Serious: Yes (Hospitalization)
  Sender: FDA-Public Use
  Company Number: IDA-00446

PATIENT
  Age: 20 Year
  Sex: Female

DRUGS (2)
  1. AVLOCARDYL (PROPRANOLOL) STRENGTH: 40MG [Suspect]
     Indication: VARICES OESOPHAGEAL
     Dosage: 40 MG BID ORAL
     Route: 048
     Dates: start: 20100401, end: 20100701
  2. NEORAL [Concomitant]

REACTIONS (3)
  - HAEMATOMA [None]
  - IRON DEFICIENCY ANAEMIA [None]
  - THROMBOCYTOPENIA [None]
